FAERS Safety Report 24176350 (Version 1)
Quarter: 2024Q3

REPORT INFORMATION
  Report Type: Spontaneous
  Country: CA (occurrence: CA)
  Receive Date: 20240806
  Receipt Date: 20240806
  Transmission Date: 20241016
  Serious: Yes (Other)
  Sender: ROCHE
  Company Number: CA-ROCHE-3296962

PATIENT
  Age: 89 Year
  Sex: Female

DRUGS (2)
  1. RITUXIMAB [Suspect]
     Active Substance: RITUXIMAB
     Indication: Rheumatoid arthritis
     Route: 041
  2. RITUXIMAB [Suspect]
     Active Substance: RITUXIMAB
     Dosage: CONCENTRATE FOR SOLUTION FOR INFUSION
     Route: 041

REACTIONS (6)
  - Hypertension [Unknown]
  - Infection [Unknown]
  - Product dose omission issue [Unknown]
  - Illness [Unknown]
  - Inappropriate schedule of product administration [Unknown]
  - Malaise [Unknown]
